FAERS Safety Report 21271233 (Version 1)
Quarter: 2022Q3

REPORT INFORMATION
  Report Type: Spontaneous
  Country: US (occurrence: None)
  Receive Date: 20220830
  Receipt Date: 20220830
  Transmission Date: 20221026
  Serious: Yes (Other)
  Sender: FDA-Public Use
  Company Number: None

PATIENT
  Sex: Female

DRUGS (1)
  1. PROLIA [Suspect]
     Active Substance: DENOSUMAB
     Indication: Senile osteoporosis
     Dosage: ?INJECT 60 MG (1 SYRINGE) UNDER THE SKIN EVERY 6 MONTHS?
     Route: 058
     Dates: start: 20210302

REACTIONS (4)
  - Renal cancer [None]
  - Retinal artery occlusion [None]
  - Herpes zoster [None]
  - COVID-19 [None]
